FAERS Safety Report 23744894 (Version 2)
Quarter: 2024Q3

REPORT INFORMATION
  Report Type: Spontaneous
  Country: JP (occurrence: JP)
  Receive Date: 20240415
  Receipt Date: 20240722
  Transmission Date: 20241017
  Serious: No
  Sender: NOVARTIS
  Company Number: JP-002147023-NVSJ2024JP004645

PATIENT
  Age: 75 Year

DRUGS (3)
  1. ENTRESTO [Suspect]
     Active Substance: SACUBITRIL\VALSARTAN
     Indication: Hypertension
     Dosage: 100 MG
     Route: 048
     Dates: start: 20231102
  2. ENTRESTO [Suspect]
     Active Substance: SACUBITRIL\VALSARTAN
     Dosage: 200 MG
     Route: 048
  3. MEMANTINE [Concomitant]
     Active Substance: MEMANTINE
     Indication: Dementia
     Dosage: UNK,AFTER BREAKFAST
     Route: 048

REACTIONS (1)
  - Dysphagia [Unknown]
